FAERS Safety Report 10035758 (Version 1)
Quarter: 2014Q1

REPORT INFORMATION
  Report Type: Report from Study
  Country: NL (occurrence: NL)
  Receive Date: 20140325
  Receipt Date: 20140325
  Transmission Date: 20141002
  Serious: Yes (Other)
  Sender: FDA-Public Use
  Company Number: PHHY2014NL035498

PATIENT
  Sex: Female

DRUGS (4)
  1. ZOMETA [Suspect]
     Indication: TRANSITIONAL CELL CARCINOMA
     Dosage: 4 MG/100 ML, (4 MG PER 3 WEEKS)
     Route: 042
  2. ZOMETA [Suspect]
     Dosage: 4 MG/100 ML, (4 MG PER 3 WEEKS)
     Route: 042
     Dates: start: 20140117
  3. ZOMETA [Suspect]
     Dosage: 4 MG/100 ML, (4 MG PER 3 WEEKS)
     Route: 042
     Dates: start: 20140207
  4. ZOMETA [Suspect]
     Dosage: 4 MG/100 ML, (4 MG PER 3 WEEKS)
     Route: 042
     Dates: start: 20140303

REACTIONS (2)
  - General physical health deterioration [Not Recovered/Not Resolved]
  - Terminal state [Not Recovered/Not Resolved]
